FAERS Safety Report 6939053-5 (Version None)
Quarter: 2010Q3

REPORT INFORMATION
  Report Type: 
  Country: None (occurrence: None)
  Receive Date: 20100824
  Receipt Date: 20100817
  Transmission Date: 20110219
  Serious: Yes (Hospitalization, Other)
  Sender: FDA-Public Use
  Company Number: JP-MERCK-1008USA02646

PATIENT
  Age: 96 Year
  Sex: Female

DRUGS (2)
  1. SINEMET [Suspect]
     Route: 048
     Dates: end: 20100810
  2. SINEMET [Suspect]
     Route: 048
     Dates: start: 20100812

REACTIONS (3)
  - ADVERSE EVENT [None]
  - HYPERTHERMIA [None]
  - NEUROLEPTIC MALIGNANT SYNDROME [None]
